FAERS Safety Report 8265058-0 (Version None)
Quarter: 2012Q2

REPORT INFORMATION
  Report Type: 
  Country: None (occurrence: None)
  Receive Date: 20120406
  Receipt Date: 20120327
  Transmission Date: 20120825
  Serious: Yes (Hospitalization)
  Sender: FDA-Public Use
  Company Number: PHEH2012US004055

PATIENT
  Sex: Male
  Weight: 85.079 kg

DRUGS (2)
  1. AFINITOR [Suspect]
     Indication: CARCINOID TUMOUR
     Dosage: 5 MG DAILY
     Route: 048
     Dates: start: 20111205, end: 20120105
  2. SUCRALFATE [Concomitant]

REACTIONS (12)
  - ATRIAL FLUTTER [None]
  - HYDRONEPHROSIS [None]
  - METABOLIC ACIDOSIS [None]
  - URINE OUTPUT DECREASED [None]
  - STOMATITIS [None]
  - BLOOD CREATININE INCREASED [None]
  - KLEBSIELLA INFECTION [None]
  - DEHYDRATION [None]
  - SEPSIS [None]
  - LIVER ABSCESS [None]
  - CHOLELITHIASIS [None]
  - RENAL FAILURE ACUTE [None]
